FAERS Safety Report 4376957-4 (Version None)
Quarter: 2004Q2

REPORT INFORMATION
  Report Type: 
  Country: None (occurrence: None)
  Receive Date: 20040614
  Receipt Date: 20040602
  Transmission Date: 20050107
  Serious: Yes (Other)
  Sender: FDA-Public Use
  Company Number: US-AMGEN-US076431

PATIENT
  Sex: Female

DRUGS (10)
  1. ENBREL [Suspect]
     Indication: RHEUMATOID ARTHRITIS
     Route: 058
     Dates: start: 20040512
  2. AZMACORT [Concomitant]
     Dates: start: 20010101
  3. MAXAIR [Concomitant]
     Dates: start: 20010101
  4. LOPRESSOR [Concomitant]
     Dates: start: 20010101
  5. GLUCOTROL [Concomitant]
  6. LIPITOR [Concomitant]
  7. COZAAR [Concomitant]
  8. VOLTAREN [Concomitant]
  9. DARVOCET-N 100 [Concomitant]
  10. FLONASE [Concomitant]

REACTIONS (6)
  - HEADACHE [None]
  - HYPOAESTHESIA [None]
  - INFLUENZA LIKE ILLNESS [None]
  - NAUSEA [None]
  - PARAESTHESIA ORAL [None]
  - THROAT TIGHTNESS [None]
